FAERS Safety Report 6145223-9 (Version None)
Quarter: 2009Q2

REPORT INFORMATION
  Report Type: 
  Country: None (occurrence: None)
  Receive Date: 20090401
  Receipt Date: 20090320
  Transmission Date: 20091009
  Serious: Yes (Death)
  Sender: FDA-Public Use
  Company Number: GXKR2009FR03745

PATIENT
  Age: 53 Year
  Sex: Female

DRUGS (12)
  1. CITALOPRAM HYDROBROMIDE [Suspect]
     Indication: PYREXIA
     Dosage: ORAL
     Route: 048
     Dates: start: 20081215, end: 20081219
  2. INTROM (ACENOCOUMAROL) 4MG [Suspect]
     Dates: end: 20081219
  3. CIFLOX (CIPROFLOXACIN) SOLUTION FOR INJECTION, 200/100MG/ML [Suspect]
     Indication: PANCYTOPENIA
     Dosage: 200 MCI, TID, INTRAVENOUS
     Route: 042
     Dates: start: 20081215, end: 20081219
  4. TAZOCILLINE (PIPERACILLIN SODIUM, TAZOBACTAM SODIUM) [Suspect]
     Indication: PYREXIA
     Dosage: 4 G, TID, INTRAVENOUS
     Route: 042
     Dates: start: 20081215, end: 20081219
  5. PREDNISONE [Concomitant]
     Indication: PANCYTOPENIA
  6. PANTOPRAZOLE SODIUM [Concomitant]
  7. IMOVANE (ZOPICLONE) [Concomitant]
  8. OSTRAM-VIT.D3 (CALCIUM PHOSPHATE, COLECALCIFEROL) [Concomitant]
  9. PAROXETINE HYDROCHLORIDE [Concomitant]
  10. FOSAMAX [Concomitant]
  11. SODIUM GLUCONATE (GLUCONATE SODIUM) [Concomitant]
  12. LAMOTRIGINE [Concomitant]

REACTIONS (11)
  - BRAIN DEATH [None]
  - BRAIN HERNIATION [None]
  - CONVULSION [None]
  - DRUG INTERACTION [None]
  - FALL [None]
  - GRAND MAL CONVULSION [None]
  - HEAD INJURY [None]
  - INTERNATIONAL NORMALISED RATIO INCREASED [None]
  - PANCYTOPENIA [None]
  - SUBARACHNOID HAEMORRHAGE [None]
  - SUBDURAL HAEMATOMA [None]
